FAERS Safety Report 5812000-5 (Version None)
Quarter: 2008Q3

REPORT INFORMATION
  Report Type: 
  Country: None (occurrence: None)
  Receive Date: 20080716
  Receipt Date: 20080714
  Transmission Date: 20090109
  Serious: Yes (Hospitalization, Other)
  Sender: FDA-Public Use
  Company Number: US-ASTRAZENECA-2008UW13946

PATIENT
  Age: 81 Year
  Sex: Female

DRUGS (9)
  1. TOPROL-XL [Suspect]
     Indication: HYPERTENSION
     Route: 048
  2. LISINOPRIL [Suspect]
     Indication: HYPERTENSION
     Route: 048
  3. TIPIFARNIB [Suspect]
     Indication: ACUTE MYELOID LEUKAEMIA
     Route: 048
     Dates: start: 20080505
  4. TIPIFARNIB [Suspect]
     Route: 048
     Dates: start: 20080611, end: 20080620
  5. ETOPOSIDE [Suspect]
     Indication: ACUTE MYELOID LEUKAEMIA
     Route: 048
     Dates: start: 20080505
  6. ETOPOSIDE [Suspect]
     Route: 048
     Dates: end: 20080620
  7. ACETYLSALICYLIC ACID SRT [Suspect]
  8. VYTORIN [Suspect]
     Indication: HYPERCHOLESTEROLAEMIA
  9. MOTRIN [Concomitant]
     Indication: GOUT

REACTIONS (2)
  - BLOOD CREATININE INCREASED [None]
  - HYPERURICAEMIA [None]
